FAERS Safety Report 8369083-0 (Version None)
Quarter: 2012Q2

REPORT INFORMATION
  Report Type: 
  Country: None (occurrence: None)
  Receive Date: 20120518
  Receipt Date: 20111117
  Transmission Date: 20120825
  Serious: Yes (Life-Threatening, Hospitalization)
  Sender: FDA-Public Use
  Company Number: TR-JNJFOC-20111107859

PATIENT
  Age: 32 Year
  Sex: Female

DRUGS (1)
  1. FENTANYL-100 [Suspect]
     Indication: DRUG ABUSE
     Route: 062

REACTIONS (4)
  - DRUG ABUSE [None]
  - INTENTIONAL OVERDOSE [None]
  - MIOSIS [None]
  - RESPIRATORY ARREST [None]
